FAERS Safety Report 16889846 (Version 3)
Quarter: 2019Q4

REPORT INFORMATION
  Report Type: Spontaneous
  Country: JP (occurrence: JP)
  Receive Date: 20191007
  Receipt Date: 20191114
  Transmission Date: 20200122
  Serious: Yes (Hospitalization, Other)
  Sender: FDA-Public Use
  Company Number: JP-PFIZER INC-2019426946

PATIENT
  Age: 69 Year
  Sex: Male
  Weight: 79.5 kg

DRUGS (10)
  1. ROCAINE [Concomitant]
     Dosage: UNK
  2. TAZOPIPE [Suspect]
     Active Substance: PIPERACILLIN SODIUM\TAZOBACTAM SODIUM
     Indication: INTERSTITIAL LUNG DISEASE
     Dosage: 4.5 G, 3X/DAY
     Route: 042
     Dates: start: 20190620, end: 20190625
  3. BACTRAMIN [Concomitant]
     Active Substance: SULFAMETHOXAZOLE\TRIMETHOPRIM
     Dosage: UNK
  4. MILLISTAPE [Concomitant]
     Dosage: 5 MG, UNK
  5. ZYVOX [Suspect]
     Active Substance: LINEZOLID
     Indication: INTERSTITIAL LUNG DISEASE
     Dosage: 600 MG, 2X/DAY
     Route: 042
     Dates: start: 20190621, end: 20190625
  6. BFLUID [Concomitant]
     Active Substance: AMINO ACIDS\DEXTROSE\ELECTROLYTES NOS\VITAMINS
     Dosage: UNK
  7. ACELIO [Concomitant]
     Active Substance: ACETAMINOPHEN
     Dosage: 1000 MG, UNK
     Route: 042
  8. HUMULIN R [Concomitant]
     Active Substance: INSULIN HUMAN
     Dosage: UNK (100 UNILS/ML)
  9. SOLU-MEDROL [Concomitant]
     Active Substance: METHYLPREDNISOLONE SODIUM SUCCINATE
     Dosage: 40 MG, UNK
     Route: 042
  10. VANCOMYCIN HYDROCHLORIDE. [Concomitant]
     Active Substance: VANCOMYCIN HYDROCHLORIDE
     Dosage: 0.5 G, UNK
     Route: 042

REACTIONS (2)
  - Platelet count decreased [Recovered/Resolved]
  - Disseminated intravascular coagulation [Unknown]

NARRATIVE: CASE EVENT DATE: 20190621
